FAERS Safety Report 24956948 (Version 1)
Quarter: 2025Q1

REPORT INFORMATION
  Report Type: Spontaneous
  Country: CN (occurrence: CN)
  Receive Date: 20250211
  Receipt Date: 20250211
  Transmission Date: 20250408
  Serious: Yes (Hospitalization, Other)
  Sender: PFIZER
  Company Number: CN-PFIZER INC-PV202500015430

PATIENT
  Age: 29 Year
  Sex: Female

DRUGS (4)
  1. METHOTREXATE SODIUM [Suspect]
     Active Substance: METHOTREXATE SODIUM
     Indication: Chemotherapy
     Dosage: 5.000000 G, 1X/DAY
     Route: 041
     Dates: start: 20250124, end: 20250124
  2. METHOTREXATE SODIUM [Suspect]
     Active Substance: METHOTREXATE SODIUM
     Indication: T-cell lymphoma
  3. VINDESINE SULFATE [Concomitant]
     Active Substance: VINDESINE SULFATE
     Indication: Chemotherapy
     Dosage: 4.000000 MG, 1X/DAY
     Route: 042
     Dates: start: 20250124, end: 20250124
  4. VINDESINE SULFATE [Concomitant]
     Active Substance: VINDESINE SULFATE
     Indication: T-cell lymphoma

REACTIONS (5)
  - Renal impairment [Recovering/Resolving]
  - Diarrhoea [Recovering/Resolving]
  - Abdominal pain [Recovering/Resolving]
  - Mucosal disorder [Recovering/Resolving]
  - Off label use [Unknown]

NARRATIVE: CASE EVENT DATE: 20250125
